FAERS Safety Report 25716893 (Version 4)
Quarter: 2025Q4

REPORT INFORMATION
  Report Type: Spontaneous
  Country: JP (occurrence: JP)
  Receive Date: 20250822
  Receipt Date: 20251203
  Transmission Date: 20260117
  Serious: Yes (Death, Hospitalization, Other)
  Sender: MERCK SHARP & DOHME LLC
  Company Number: JP-009507513-2321766

PATIENT
  Age: 51 Year
  Sex: Female
  Weight: 71 kg

DRUGS (1)
  1. KEYTRUDA [Suspect]
     Active Substance: PEMBROLIZUMAB
     Indication: Triple negative breast cancer
     Route: 041
     Dates: start: 20241211, end: 20250611

REACTIONS (9)
  - Hepatitis fulminant [Fatal]
  - Physical deconditioning [Unknown]
  - Circulatory collapse [Unknown]
  - Acute hepatic failure [Fatal]
  - Disseminated intravascular coagulation [Unknown]
  - Depressed level of consciousness [Unknown]
  - Dyspnoea [Unknown]
  - Decreased appetite [Unknown]
  - Acidosis [Unknown]

NARRATIVE: CASE EVENT DATE: 20241201
